FAERS Safety Report 4303136-9 (Version None)
Quarter: 2004Q1

REPORT INFORMATION
  Report Type: 
  Country: None (occurrence: None)
  Receive Date: 20040224
  Receipt Date: 19940322
  Transmission Date: 20041129
  Serious: Yes (Other)
  Sender: FDA-Public Use
  Company Number: B016874

PATIENT
  Age: 45 Year
  Sex: Female

DRUGS (2)
  1. TAXOL [Suspect]
     Indication: BREAST CANCER
     Dosage: DOSE UNIT: MILLIGRAM/SQUARE METER
     Route: 050
     Dates: start: 19930201
  2. PLATINOL [Concomitant]
     Dosage: DOSE UNIT: MILLIGRAM/SQUARE METER
     Route: 050
     Dates: start: 19930201

REACTIONS (1)
  - RECALL PHENOMENON [None]
